FAERS Safety Report 24044589 (Version 2)
Quarter: 2024Q3

REPORT INFORMATION
  Report Type: Spontaneous
  Country: US (occurrence: US)
  Receive Date: 20240703
  Receipt Date: 20240709
  Transmission Date: 20241017
  Serious: No
  Sender: ELI LILLY AND CO
  Company Number: US-ELI_LILLY_AND_COMPANY-US202407001161

PATIENT
  Age: 43 Year
  Sex: Female

DRUGS (16)
  1. MOUNJARO [Suspect]
     Active Substance: TIRZEPATIDE
     Indication: Binge eating
     Dosage: 5 MG, 2/W
     Route: 058
     Dates: start: 2023
  2. MOUNJARO [Suspect]
     Active Substance: TIRZEPATIDE
     Indication: Binge eating
     Dosage: 5 MG, 2/W
     Route: 058
     Dates: start: 2023
  3. MOUNJARO [Suspect]
     Active Substance: TIRZEPATIDE
     Indication: Binge eating
     Dosage: 5 MG, 2/W
     Route: 058
     Dates: start: 2023
  4. MOUNJARO [Suspect]
     Active Substance: TIRZEPATIDE
     Indication: Binge eating
     Dosage: 5 MG, 2/W
     Route: 058
     Dates: start: 2023
  5. MOUNJARO [Suspect]
     Active Substance: TIRZEPATIDE
     Indication: Bulimia nervosa
  6. MOUNJARO [Suspect]
     Active Substance: TIRZEPATIDE
     Indication: Bulimia nervosa
  7. MOUNJARO [Suspect]
     Active Substance: TIRZEPATIDE
     Indication: Bulimia nervosa
  8. MOUNJARO [Suspect]
     Active Substance: TIRZEPATIDE
     Indication: Bulimia nervosa
  9. MOUNJARO [Suspect]
     Active Substance: TIRZEPATIDE
     Indication: Binge eating
     Dosage: 7.5 MG, 2/W
     Route: 058
  10. MOUNJARO [Suspect]
     Active Substance: TIRZEPATIDE
     Indication: Binge eating
     Dosage: 7.5 MG, 2/W
     Route: 058
  11. MOUNJARO [Suspect]
     Active Substance: TIRZEPATIDE
     Indication: Binge eating
     Dosage: 7.5 MG, 2/W
     Route: 058
  12. MOUNJARO [Suspect]
     Active Substance: TIRZEPATIDE
     Indication: Binge eating
     Dosage: 7.5 MG, 2/W
     Route: 058
  13. MOUNJARO [Suspect]
     Active Substance: TIRZEPATIDE
     Indication: Bulimia nervosa
     Dosage: 7.5 MG, 2/W
     Route: 058
  14. MOUNJARO [Suspect]
     Active Substance: TIRZEPATIDE
     Indication: Bulimia nervosa
     Dosage: 7.5 MG, 2/W
     Route: 058
  15. MOUNJARO [Suspect]
     Active Substance: TIRZEPATIDE
     Indication: Bulimia nervosa
     Dosage: 7.5 MG, 2/W
     Route: 058
  16. MOUNJARO [Suspect]
     Active Substance: TIRZEPATIDE
     Indication: Bulimia nervosa
     Dosage: 7.5 MG, 2/W
     Route: 058

REACTIONS (6)
  - Off label use [Unknown]
  - Extra dose administered [Unknown]
  - Inappropriate schedule of product administration [Unknown]
  - Injection site injury [Recovering/Resolving]
  - Injection site haemorrhage [Recovered/Resolved]
  - Injection site bruising [Recovering/Resolving]

NARRATIVE: CASE EVENT DATE: 20240629
